FAERS Safety Report 9241341 (Version 1)
Quarter: 2013Q2

REPORT INFORMATION
  Report Type: Spontaneous
  Country: FR (occurrence: FR)
  Receive Date: 20130419
  Receipt Date: 20130419
  Transmission Date: 20140414
  Serious: Yes (Disabling)
  Sender: FDA-Public Use
  Company Number: FR-PFIZER INC-2013120099

PATIENT
  Age: 68 Year
  Sex: Male

DRUGS (16)
  1. FLUOROURACILE PFIZER [Suspect]
     Indication: METASTASES TO LIVER
     Dosage: 796 MG, SINGLE (FIRST COURSE)
     Route: 042
     Dates: start: 20130204, end: 20130204
  2. FLUOROURACILE PFIZER [Suspect]
     Dosage: 2388 MG, SINGLE (FIRST COURSE)
     Route: 042
     Dates: start: 20130205, end: 20130205
  3. FLUOROURACILE PFIZER [Suspect]
     Dosage: 788 MG, SINGLE (SECOND COURSE, ON DAY 1)
     Dates: start: 20130218, end: 20130218
  4. FLUOROURACILE PFIZER [Suspect]
     Dosage: 2364 MG, SINGLE (SECOND COURSE, ON DAY 2)
     Dates: start: 20130219, end: 20130219
  5. FLUOROURACILE PFIZER [Suspect]
     Dosage: THIRD COURSE
     Dates: start: 20130304, end: 20130304
  6. OXALIPLATIN TEVA [Suspect]
     Indication: METASTASES TO LIVER
     Dosage: 169 MG, SINGLE (FIRST COURSE)
     Route: 042
     Dates: start: 20130204, end: 20130204
  7. OXALIPLATIN TEVA [Suspect]
     Dosage: 167 MG, SINGLE (SECOND COURSE)
     Dates: start: 20130218, end: 20130218
  8. OXALIPLATIN TEVA [Suspect]
     Dosage: THIRD COURSE
     Dates: start: 20130304, end: 20130304
  9. AVASTIN [Suspect]
     Indication: METASTASES TO LIVER
     Dosage: 425 MG, SINGLE (ONE SINGLE INTAKE)
     Route: 042
     Dates: start: 20130204, end: 20130204
  10. AVASTIN [Suspect]
     Dosage: 405 MG, SINGLE (SECOND COURSE)
     Dates: start: 20130218, end: 20130218
  11. AVASTIN [Suspect]
     Dosage: THIRD COURSE
     Dates: start: 20130304, end: 20130304
  12. LEVOFOLINATE CALCIUM [Suspect]
     Indication: METASTASES TO LIVER
     Dosage: 398 MG, SINGLE (ONE SINGLE INTAKE)
     Route: 042
     Dates: start: 20130204, end: 20130204
  13. LEVOFOLINATE CALCIUM [Suspect]
     Dosage: 394 MG, SINGLE (SECOND COURSE)
     Dates: start: 20130218, end: 20130218
  14. LEVOFOLINATE CALCIUM [Suspect]
     Dosage: THIRD COURSE
     Dates: start: 20130304, end: 20130304
  15. CALCIUM GLUCONATE [Concomitant]
     Dosage: 1 G 15 MINUTES BEFORE AND 15 MINUTES AFTER EACH INFUSION OF OXALIPLATIN INFUSION
  16. MAGNESIUM SULFATE [Concomitant]
     Dosage: 1.5 G 15 MINUTES BEFORE AND 15 MINUTES AFTER EACH INFUSION OXALIPLATIN INFUSION

REACTIONS (3)
  - Paraesthesia [Unknown]
  - Asthenia [Unknown]
  - Nausea [Unknown]
